FAERS Safety Report 6672690-4 (Version None)
Quarter: 2010Q2

REPORT INFORMATION
  Report Type: 
  Country: None (occurrence: None)
  Receive Date: 20100408
  Receipt Date: 20100330
  Transmission Date: 20101027
  Serious: Yes (Hospitalization)
  Sender: FDA-Public Use
  Company Number: US-ROCHE-691693

PATIENT
  Sex: Female
  Weight: 91.4 kg

DRUGS (23)
  1. TOCILIZUMAB [Suspect]
     Indication: RHEUMATOID ARTHRITIS
     Dosage: LAST DOSE PRIOR TO SAE: 24 FEB 2010
     Route: 042
     Dates: start: 20060927, end: 20100317
  2. TOCILIZUMAB [Suspect]
     Dosage: PATIENT WAS PREVIOUSLY ENROLLED IN THE STUDY WA18063.
     Route: 042
     Dates: start: 20060411
  3. ASPIRIN [Suspect]
     Indication: CORONARY ARTERY DISEASE
     Route: 065
  4. PLAVIX [Suspect]
     Indication: CORONARY ARTERY DISEASE
     Route: 065
  5. LIPITOR [Concomitant]
     Dates: start: 20050101
  6. LASIX [Concomitant]
     Dates: start: 20081201
  7. APRESOLINE [Concomitant]
     Dates: start: 20090319
  8. NIFEDIPINE [Concomitant]
     Dates: start: 20090501
  9. METOPROLOL TARTRATE [Concomitant]
     Dates: start: 20091218
  10. PROPOXYPHENE HCL [Concomitant]
     Dosage: TDD: 2 PRN
     Dates: start: 20020101
  11. POTASSIUM CHLORIDE [Concomitant]
     Route: 048
     Dates: start: 20051101
  12. POTASSIUM CHLORIDE [Concomitant]
     Route: 048
  13. VITAMIN C [Concomitant]
     Dates: start: 20071022
  14. PRILOSEC [Concomitant]
     Route: 048
     Dates: start: 20081201
  15. ARICEPT [Concomitant]
     Dates: start: 20090421
  16. ALENDRONATE SODIUM [Concomitant]
     Dates: start: 20090424
  17. LISINOPRIL [Concomitant]
     Route: 048
     Dates: start: 20091116
  18. LISINOPRIL [Concomitant]
     Route: 048
  19. NORVASC [Concomitant]
     Route: 048
     Dates: start: 20091218
  20. NORVASC [Concomitant]
     Route: 048
  21. PREDNISONE [Concomitant]
     Route: 048
     Dates: start: 20090703
  22. PREDNISONE [Concomitant]
     Route: 048
  23. ASPIRIN [Concomitant]
     Dates: start: 20091218

REACTIONS (1)
  - COLITIS [None]
